FAERS Safety Report 21007985 (Version 1)
Quarter: 2022Q3

REPORT INFORMATION
  Report Type: Spontaneous
  Country: US (occurrence: US)
  Receive Date: 20220627
  Receipt Date: 20220627
  Transmission Date: 20221027
  Serious: No
  Sender: FDA-Public Use
  Company Number: US-NOVARTISTESTPH-NVSC2022US145983

PATIENT
  Age: 88 Year
  Sex: Male

DRUGS (1)
  1. TABRECTA [Suspect]
     Active Substance: CAPMATINIB
     Indication: Lung cancer metastatic
     Dosage: 200 MG, BID
     Route: 048
     Dates: start: 2021, end: 2022

REACTIONS (1)
  - Oedema peripheral [Recovering/Resolving]
